FAERS Safety Report 12173621 (Version 1)
Quarter: 2016Q1

REPORT INFORMATION
  Report Type: Spontaneous
  Country: US (occurrence: None)
  Receive Date: 20160311
  Receipt Date: 20160311
  Transmission Date: 20160526
  Serious: No
  Sender: FDA-Public Use
  Company Number: None

PATIENT
  Age: 80 Year
  Sex: Female

DRUGS (5)
  1. VITAMIN E [Concomitant]
     Active Substance: .ALPHA.-TOCOPHEROL
  2. IBRANCE [Suspect]
     Active Substance: PALBOCICLIB
     Indication: BREAST CANCER
     Dosage: 125MG 3WKS ON 1 WK OFF QD PO
     Route: 048
     Dates: start: 20150623
  3. ZOCOR [Concomitant]
     Active Substance: SIMVASTATIN
  4. COZAAR [Concomitant]
     Active Substance: LOSARTAN POTASSIUM
  5. LETROZOLE 2.5MG TAB TEVA [Suspect]
     Active Substance: LETROZOLE
     Indication: BREAST CANCER
     Route: 048
     Dates: start: 20150623

REACTIONS (4)
  - Nasopharyngitis [None]
  - Fatigue [None]
  - Deafness [None]
  - Alopecia [None]

NARRATIVE: CASE EVENT DATE: 201602
